FAERS Safety Report 24248509 (Version 3)
Quarter: 2025Q2

REPORT INFORMATION
  Report Type: Spontaneous
  Country: ES (occurrence: ES)
  Receive Date: 20240826
  Receipt Date: 20250626
  Transmission Date: 20250717
  Serious: Yes (Hospitalization, Other)
  Sender: MYLAN
  Company Number: None

PATIENT
  Age: 42 Year
  Sex: Female

DRUGS (8)
  1. ACETAMINOPHEN [Suspect]
     Active Substance: ACETAMINOPHEN
     Indication: Product used for unknown indication
     Dosage: 200 MILLIGRAM, QD
     Dates: start: 20240731
  2. ACETAMINOPHEN [Suspect]
     Active Substance: ACETAMINOPHEN
     Dosage: 200 MILLIGRAM, QD
     Route: 065
     Dates: start: 20240731
  3. ACETAMINOPHEN [Suspect]
     Active Substance: ACETAMINOPHEN
     Dosage: 200 MILLIGRAM, QD
     Route: 065
     Dates: start: 20240731
  4. ACETAMINOPHEN [Suspect]
     Active Substance: ACETAMINOPHEN
     Dosage: 200 MILLIGRAM, QD
     Dates: start: 20240731
  5. METAMIZOL [Suspect]
     Active Substance: METAMIZOLE SODIUM
     Indication: Product used for unknown indication
  6. METAMIZOL [Suspect]
     Active Substance: METAMIZOLE SODIUM
     Route: 065
  7. METAMIZOL [Suspect]
     Active Substance: METAMIZOLE SODIUM
     Route: 065
  8. METAMIZOL [Suspect]
     Active Substance: METAMIZOLE SODIUM

REACTIONS (5)
  - Analgesic drug level increased [Recovering/Resolving]
  - Suicide attempt [Unknown]
  - Poisoning deliberate [Recovering/Resolving]
  - Intentional overdose [Recovering/Resolving]
  - Off label use [Unknown]

NARRATIVE: CASE EVENT DATE: 20240731
